FAERS Safety Report 10685405 (Version 1)
Quarter: 2014Q4

REPORT INFORMATION
  Report Type: Spontaneous
  Country: US (occurrence: None)
  Receive Date: 20141230
  Receipt Date: 20141230
  Transmission Date: 20150529
  Serious: Yes (Other)
  Sender: FDA-Public Use
  Company Number: None

PATIENT
  Age: 62 Year
  Sex: Female

DRUGS (3)
  1. NODAFINIL (PROVIGIL) [Concomitant]
  2. TECFIDERA [Suspect]
     Active Substance: DIMETHYL FUMARATE
     Indication: MULTIPLE SCLEROSIS
     Route: 048
     Dates: start: 20141220
  3. MOBIC [Concomitant]
     Active Substance: MELOXICAM

REACTIONS (3)
  - Night sweats [None]
  - Dyspepsia [None]
  - Middle insomnia [None]

NARRATIVE: CASE EVENT DATE: 20141220
